FAERS Safety Report 14078115 (Version 1)
Quarter: 2017Q4

REPORT INFORMATION
  Report Type: Spontaneous
  Country: US (occurrence: None)
  Receive Date: 20171011
  Receipt Date: 20171011
  Transmission Date: 20180321
  Serious: Yes (Hospitalization)
  Sender: FDA-Public Use
  Company Number: None

PATIENT
  Age: 74 Year
  Sex: Male
  Weight: 100 kg

DRUGS (1)
  1. APIXABAN [Suspect]
     Active Substance: APIXABAN
     Route: 048
     Dates: start: 20170426, end: 20170912

REACTIONS (7)
  - Poor quality sleep [None]
  - Haematocrit decreased [None]
  - Haemoglobin decreased [None]
  - Hypophagia [None]
  - Acute kidney injury [None]
  - Encephalopathy [None]
  - Melaena [None]

NARRATIVE: CASE EVENT DATE: 20170526
